FAERS Safety Report 17741938 (Version 1)
Quarter: 2020Q2

REPORT INFORMATION
  Report Type: Spontaneous
  Country: JP (occurrence: JP)
  Receive Date: 20200504
  Receipt Date: 20200504
  Transmission Date: 20200714
  Serious: Yes (Hospitalization)
  Sender: FDA-Public Use
  Company Number: JP-ABBVIE-19P-087-2938095-00

PATIENT
  Age: 41 Year
  Sex: Female
  Weight: 41.9 kg

DRUGS (4)
  1. HUMIRA [Suspect]
     Active Substance: ADALIMUMAB
     Indication: ANKYLOSING SPONDYLITIS
     Route: 058
     Dates: start: 20160720, end: 20190521
  2. METOCLOPRAMIDE. [Concomitant]
     Active Substance: METOCLOPRAMIDE
     Indication: PROPHYLAXIS OF NAUSEA AND VOMITING
     Route: 048
     Dates: start: 20160602
  3. HUMIRA [Suspect]
     Active Substance: ADALIMUMAB
     Route: 058
  4. TRAMADOL HYDROCHLORIDE AND ACETAMINOPHEN [Concomitant]
     Active Substance: ACETAMINOPHEN\TRAMADOL HYDROCHLORIDE
     Indication: PAIN
     Route: 048
     Dates: start: 20160602

REACTIONS (5)
  - Drug ineffective [Unknown]
  - Spondylitis [Recovering/Resolving]
  - Rash pustular [Recovering/Resolving]
  - Back pain [Unknown]
  - Palmoplantar pustulosis [Recovered/Resolved]

NARRATIVE: CASE EVENT DATE: 20190115
